FAERS Safety Report 9508096 (Version 1)
Quarter: 2013Q3

REPORT INFORMATION
  Report Type: Spontaneous
  Country: DE (occurrence: DE)
  Receive Date: 20130909
  Receipt Date: 20130909
  Transmission Date: 20140515
  Serious: Yes (Other)
  Sender: FDA-Public Use
  Company Number: GXKR2013DE002966

PATIENT
  Sex: 0

DRUGS (1)
  1. THIAMAZOLE [Suspect]
     Indication: BASEDOW^S DISEASE
     Dosage: 5 - 15 MG DAILY
     Route: 048

REACTIONS (1)
  - Abortion late [Recovered/Resolved]
